FAERS Safety Report 15067093 (Version 1)
Quarter: 2018Q2

REPORT INFORMATION
  Report Type: Spontaneous
  Country: US (occurrence: US)
  Receive Date: 20180626
  Receipt Date: 20180626
  Transmission Date: 20180711
  Serious: Yes (Hospitalization)
  Sender: FDA-Public Use
  Company Number: US-B.I. PHARMACEUTICALS,INC./RIDGEFIELD-2018-BI-032022

PATIENT
  Age: 79 Year
  Sex: Female

DRUGS (3)
  1. ALBUTEROL. [Concomitant]
     Active Substance: ALBUTEROL
     Indication: CHRONIC OBSTRUCTIVE PULMONARY DISEASE
     Dosage: AS NEEDED;  FORMULATION: INHALATION AEROSOL;
     Route: 055
  2. SPIRIVA [Suspect]
     Active Substance: TIOTROPIUM BROMIDE MONOHYDRATE
     Indication: CHRONIC OBSTRUCTIVE PULMONARY DISEASE
     Dosage: FORM STRENGTH: 18 MCG; ?ACTION(S) TAKEN WITH PRODUCT: DRUG WITHDRAWN
     Route: 055
     Dates: start: 2015, end: 2015
  3. SPIRIVA [Suspect]
     Active Substance: TIOTROPIUM BROMIDE MONOHYDRATE
     Dosage: 1 CAPUSLE DAILY;  ? ADMINISTRATION CORRECT? YES ?ACTION(S) TAKEN WITH PRODUCT: DRUG WITHDRAWN
     Route: 055
     Dates: start: 201712, end: 2018

REACTIONS (2)
  - Chronic obstructive pulmonary disease [Not Recovered/Not Resolved]
  - Cardiomyopathy [Not Recovered/Not Resolved]

NARRATIVE: CASE EVENT DATE: 201712
